FAERS Safety Report 12278573 (Version 2)
Quarter: 2016Q3

REPORT INFORMATION
  Report Type: Spontaneous
  Country: US (occurrence: US)
  Receive Date: 20160418
  Receipt Date: 20160825
  Transmission Date: 20161109
  Serious: Yes (Other)
  Sender: FDA-Public Use
  Company Number: US-TEVA-651813USA

PATIENT
  Age: 43 Year
  Sex: Female

DRUGS (5)
  1. ZOLOFT [Concomitant]
     Active Substance: SERTRALINE HYDROCHLORIDE
  2. ZECUITY [Suspect]
     Active Substance: SUMATRIPTAN SUCCINATE
     Indication: MIGRAINE
     Route: 062
     Dates: start: 20160411
  3. PERCOCET [Concomitant]
     Active Substance: ACETAMINOPHEN\OXYCODONE HYDROCHLORIDE
  4. MULTIVITAMIN [Concomitant]
     Active Substance: VITAMINS
  5. TROKENDI [Concomitant]
     Active Substance: TOPIRAMATE

REACTIONS (12)
  - Drug effect incomplete [Unknown]
  - Application site rash [Recovered/Resolved]
  - Application site vesicles [Recovered/Resolved]
  - Application site burn [Recovered/Resolved]
  - Application site erythema [Recovered/Resolved]
  - Application site pain [Recovered/Resolved]
  - Application site discomfort [Recovered/Resolved]
  - Sunburn [Recovered/Resolved]
  - Headache [Unknown]
  - Application site discolouration [Recovered/Resolved]
  - Drug ineffective [Unknown]
  - Application site warmth [Recovered/Resolved]

NARRATIVE: CASE EVENT DATE: 20160411
